FAERS Safety Report 10241838 (Version 1)
Quarter: 2014Q2

REPORT INFORMATION
  Report Type: Spontaneous
  Country: US (occurrence: None)
  Receive Date: 20140612
  Receipt Date: 20140612
  Transmission Date: 20141212
  Serious: Yes (Hospitalization, Other)
  Sender: FDA-Public Use
  Company Number: US-ZYDUS-003661

PATIENT
  Age: 62 Year
  Sex: Male

DRUGS (4)
  1. TRAMADOL (TRAMADOL) [Suspect]
     Indication: PAIN
     Route: 048
  2. BUPROPION (BUPROPION) [Suspect]
     Indication: DEPRESSION
     Route: 048
  3. TRAZODONE (TRAZODONE) [Suspect]
     Indication: INSOMNIA
  4. OXYCODONE (OXYCODONE) [Suspect]
     Indication: PAIN
     Route: 048

REACTIONS (4)
  - Serotonin syndrome [None]
  - Drug interaction [None]
  - Hypertension [None]
  - Toxicity to various agents [None]
